FAERS Safety Report 6301219-5 (Version None)
Quarter: 2009Q3

REPORT INFORMATION
  Report Type: 
  Country: None (occurrence: None)
  Receive Date: 20090807
  Receipt Date: 20090729
  Transmission Date: 20100115
  Serious: Yes (Life-Threatening)
  Sender: FDA-Public Use
  Company Number: DE-JNJFOC-20090709549

PATIENT
  Age: 28 Year
  Sex: Female

DRUGS (6)
  1. REMICADE [Suspect]
     Route: 042
  2. REMICADE [Suspect]
     Indication: RHEUMATOID ARTHRITIS
     Route: 042
  3. METHOTREXATE [Suspect]
  4. METHOTREXATE [Suspect]
  5. METHOTREXATE [Suspect]
  6. METHOTREXATE [Suspect]
     Indication: RHEUMATOID ARTHRITIS

REACTIONS (1)
  - ANGIOEDEMA [None]
